FAERS Safety Report 7367678-4 (Version None)
Quarter: 2011Q1

REPORT INFORMATION
  Report Type: 
  Country: None (occurrence: None)
  Receive Date: 20110308
  Receipt Date: 20110222
  Transmission Date: 20110831
  Serious: Yes (Hospitalization)
  Sender: FDA-Public Use
  Company Number: DSA_45089_2011

PATIENT
  Age: 78 Year
  Sex: Female

DRUGS (7)
  1. ENALAPRIL MALEATE [Suspect]
     Indication: PRODUCT USED FOR UNKNOWN INDICATION
     Dosage: DR ORAL, DOSE REDUCED
     Route: 048
  2. ACENOCOUMAROL [Concomitant]
  3. FOSAMAX [Concomitant]
  4. BURINEX (BURINEX - BUMETANIDE) (NOT SPECIFIED) [Suspect]
     Indication: PRODUCT USED FOR UNKNOWN INDICATION
     Dosage: 5, 1 MG, UNKNOWN ORAL, (DF, DOSE REDUCED)
     Route: 048
     Dates: start: 20070123, end: 20070124
  5. BURINEX (BURINEX - BUMETANIDE) (NOT SPECIFIED) [Suspect]
     Indication: PRODUCT USED FOR UNKNOWN INDICATION
     Dosage: 5, 1 MG, UNKNOWN ORAL, (DF, DOSE REDUCED)
     Route: 048
     Dates: start: 20070126
  6. BLINDED THERAPY [Suspect]
     Indication: CARDIAC FAILURE
     Dosage: 25 MG, QOD
     Dates: start: 20061208, end: 20080108
  7. SELOKEN [Concomitant]

REACTIONS (2)
  - CONDITION AGGRAVATED [None]
  - CARDIAC FAILURE [None]
